FAERS Safety Report 4957821-6 (Version None)
Quarter: 2006Q1

REPORT INFORMATION
  Report Type: 
  Country: None (occurrence: None)
  Receive Date: 20060330
  Receipt Date: 20060321
  Transmission Date: 20060701
  Serious: Yes (Hospitalization)
  Sender: FDA-Public Use
  Company Number: 2006PK00566

PATIENT
  Age: 80 Year
  Sex: Female

DRUGS (8)
  1. SEROQUEL [Suspect]
     Route: 048
     Dates: start: 20050906
  2. SEROQUEL [Suspect]
     Route: 048
  3. EXELON [Concomitant]
     Route: 048
     Dates: start: 20050901
  4. MADOPAR [Concomitant]
     Route: 048
     Dates: start: 20040101
  5. COMTESS [Concomitant]
     Route: 048
     Dates: start: 20040101, end: 20050825
  6. COMTESS [Concomitant]
     Route: 048
     Dates: start: 20050826
  7. CARBIDOPA + LEVODOPA [Concomitant]
     Route: 048
     Dates: start: 20040101
  8. FALITHROM [Concomitant]
     Dates: start: 20040101, end: 20060906

REACTIONS (2)
  - DEPRESSED LEVEL OF CONSCIOUSNESS [None]
  - RESPIRATORY ARREST [None]
